FAERS Safety Report 7609325-X (Version None)
Quarter: 2011Q3

REPORT INFORMATION
  Report Type: 
  Country: None (occurrence: None)
  Receive Date: 20110714
  Receipt Date: 20110701
  Transmission Date: 20111222
  Serious: Yes (Death, Other)
  Sender: FDA-Public Use
  Company Number: PHHY2011DE60524

PATIENT
  Age: 62 Year
  Sex: Female

DRUGS (3)
  1. CYCLOSPORINE [Suspect]
     Indication: IMMUNOSUPPRESSION
     Dosage: UNK
  2. AZATHIOPRINE [Suspect]
     Dosage: UNK
  3. ANTI-THYMOCYTE GLOBULIN NOS [Concomitant]
     Indication: IMMUNOSUPPRESSION
     Dosage: UNK

REACTIONS (3)
  - DEATH [None]
  - HAEMATURIA [None]
  - RENAL CELL CARCINOMA [None]
